FAERS Safety Report 18147329 (Version 2)
Quarter: 2020Q3

REPORT INFORMATION
  Report Type: Spontaneous
  Country: JP (occurrence: JP)
  Receive Date: 20200813
  Receipt Date: 20200903
  Transmission Date: 20201103
  Serious: Yes (Other)
  Sender: FDA-Public Use
  Company Number: JP-AMGEN-JPNSP2020126961

PATIENT
  Age: 61 Year
  Sex: Female
  Weight: 61 kg

DRUGS (3)
  1. EDIROL [Concomitant]
     Active Substance: ELDECALCITOL
     Dosage: UNK
     Dates: start: 20171120, end: 20200804
  2. EVENITY [Suspect]
     Active Substance: ROMOSOZUMAB-AQQG
     Indication: OSTEOPOROSIS
     Dosage: 210 MILLIGRAM
     Route: 058
     Dates: start: 20190806, end: 202007
  3. BONVIVA [Concomitant]
     Active Substance: IBANDRONATE SODIUM
     Dosage: UNK, QMO, WITHHELD ON 02/JUL/2019, RESTARTED ON 04/AUG/2020
     Dates: start: 20171120

REACTIONS (3)
  - Retinal haemorrhage [Recovered/Resolved]
  - Arteriosclerotic retinopathy [Recovered/Resolved]
  - Retinal vein occlusion [Unknown]

NARRATIVE: CASE EVENT DATE: 20200803
